FAERS Safety Report 24625121 (Version 1)
Quarter: 2024Q4

REPORT INFORMATION
  Report Type: Spontaneous
  Country: US (occurrence: None)
  Receive Date: 20241114
  Receipt Date: 20241114
  Transmission Date: 20250115
  Serious: Yes (Hospitalization)
  Sender: Public
  Company Number: None

PATIENT
  Age: 73 Year
  Sex: Female

DRUGS (3)
  1. VERZENIO [Suspect]
     Active Substance: ABEMACICLIB
     Dosage: FREQUENCY : TWICE A DAY;?
     Route: 048
  2. LETROZOLE [Suspect]
     Active Substance: LETROZOLE
  3. TORSEMIDE [Suspect]
     Active Substance: TORSEMIDE

REACTIONS (3)
  - Metastases to liver [None]
  - Chronic kidney disease [None]
  - Condition aggravated [None]

NARRATIVE: CASE EVENT DATE: 20241111
